FAERS Safety Report 4922330-7 (Version None)
Quarter: 2006Q1

REPORT INFORMATION
  Report Type: 
  Country: None (occurrence: None)
  Receive Date: 20060224
  Receipt Date: 20060209
  Transmission Date: 20060701
  Serious: Yes (Hospitalization)
  Sender: FDA-Public Use
  Company Number: JP-MERCK-0602USA03224

PATIENT
  Age: 82 Year
  Sex: Male

DRUGS (7)
  1. COZAAR [Suspect]
     Indication: HYPERTENSION
     Route: 048
     Dates: end: 20060118
  2. BUFFERIN [Concomitant]
     Route: 048
     Dates: end: 20060118
  3. UNIPHYL [Concomitant]
     Route: 048
     Dates: end: 20060118
  4. PEPCID [Concomitant]
     Route: 048
     Dates: end: 20060118
  5. BASEN [Concomitant]
     Route: 048
     Dates: end: 20060118
  6. NITRODERM [Concomitant]
     Route: 061
     Dates: end: 20060118
  7. HOKUNALIN [Concomitant]
     Route: 061
     Dates: end: 20060118

REACTIONS (1)
  - RHABDOMYOLYSIS [None]
